FAERS Safety Report 5053717-2 (Version None)
Quarter: 2006Q3

REPORT INFORMATION
  Report Type: 
  Country: None (occurrence: None)
  Receive Date: 20060718
  Receipt Date: 20060706
  Transmission Date: 20061208
  Serious: Yes (Hospitalization)
  Sender: FDA-Public Use
  Company Number: CH-ROCHE-454240

PATIENT
  Age: 70 Year
  Sex: Female

DRUGS (6)
  1. CAPECITABINE [Suspect]
     Indication: BILIARY CANCER METASTATIC
     Route: 048
     Dates: start: 20060621, end: 20060623
  2. GEMCITABINE [Suspect]
     Indication: BILIARY CANCER METASTATIC
     Route: 042
     Dates: start: 20060621, end: 20060621
  3. NEXIUM [Concomitant]
     Route: 048
  4. DUPHALAC [Concomitant]
     Route: 048
  5. TEMESTA [Concomitant]
     Route: 048
  6. TRAMADOL HCL [Concomitant]

REACTIONS (1)
  - CHOLANGITIS [None]
